FAERS Safety Report 9697285 (Version 1)
Quarter: 2013Q4

REPORT INFORMATION
  Report Type: Spontaneous
  Country: US (occurrence: US)
  Receive Date: 20131120
  Receipt Date: 20131120
  Transmission Date: 20140711
  Serious: Yes (Other)
  Sender: FDA-Public Use
  Company Number: US-ASTRAZENECA-2013SE83756

PATIENT
  Age: 61 Year
  Sex: Female
  Weight: 52.2 kg

DRUGS (12)
  1. TOPROL-XL [Suspect]
     Indication: ANGINA PECTORIS
     Route: 048
     Dates: start: 2001
  2. TOPROL-XL [Suspect]
     Indication: ANGINA PECTORIS
     Route: 048
     Dates: end: 20131105
  3. TOPROL-XL [Suspect]
     Indication: ANGINA PECTORIS
     Dosage: METOPROLOL SUCCINATE (PAR), 125 MG DAILY
     Route: 048
     Dates: start: 20131106
  4. TOPROL-XL [Suspect]
     Indication: ANGINA PECTORIS
     Dosage: METOPROLOL SUCCINATE (PAR), 125 MG DOSAGE IN THE MORNING AND THE OTHER 25 MG 2 HOURS LATER
     Route: 048
     Dates: start: 20131111
  5. CRESTOR [Suspect]
     Indication: HYPERLIPIDAEMIA
     Route: 048
     Dates: start: 2012, end: 2013
  6. CRESTOR [Suspect]
     Indication: HYPERLIPIDAEMIA
     Route: 048
     Dates: start: 2013
  7. ASPIRIN [Concomitant]
     Indication: ANTIPLATELET THERAPY
     Dates: start: 2001
  8. COUMADIN BRAND [Concomitant]
     Indication: THROMBOSIS
     Dates: start: 2001
  9. PLAVIX [Concomitant]
     Indication: CORONARY ARTERIAL STENT INSERTION
     Dates: start: 201302
  10. LIPITOR [Concomitant]
     Indication: HYPERLIPIDAEMIA
     Dates: start: 2001, end: 2012
  11. ENALAPRIL [Concomitant]
     Indication: CARDIAC DISORDER
     Dosage: BID
     Dates: start: 2012
  12. VASOTEC [Concomitant]
     Indication: CARDIAC DISORDER
     Dosage: BID
     Dates: end: 2012

REACTIONS (8)
  - Arterial restenosis [Unknown]
  - Heart rate increased [Unknown]
  - Pulse abnormal [Unknown]
  - Blood pressure increased [Unknown]
  - Low density lipoprotein decreased [Recovered/Resolved]
  - Mental disorder [Unknown]
  - Headache [Unknown]
  - Off label use [Unknown]
